FAERS Safety Report 22001898 (Version 1)
Quarter: 2023Q1

REPORT INFORMATION
  Report Type: Spontaneous
  Country: US (occurrence: US)
  Receive Date: 20230216
  Receipt Date: 20230216
  Transmission Date: 20230417
  Serious: Yes (Death, Hospitalization, Other)
  Sender: FDA-Public Use
  Company Number: US-MERCK-1109USA03249

PATIENT
  Sex: Female

DRUGS (6)
  1. FOSAMAX [Suspect]
     Active Substance: ALENDRONATE SODIUM
     Indication: Osteoporosis
     Dosage: 70 MG, QW
     Route: 048
     Dates: start: 1998, end: 200910
  2. FOSAMAX [Suspect]
     Active Substance: ALENDRONATE SODIUM
     Indication: Osteopenia
  3. METICORTEN [Concomitant]
     Active Substance: PREDNISONE
     Dates: start: 199801
  4. HYDROXYCHLOROQUINE SULFATE [Concomitant]
     Active Substance: HYDROXYCHLOROQUINE SULFATE
     Indication: Systemic lupus erythematosus
     Dates: start: 1996, end: 2009
  5. CELLCEPT [Concomitant]
     Active Substance: MYCOPHENOLATE MOFETIL
     Indication: Systemic lupus erythematosus
     Dates: start: 1996, end: 2009
  6. BONIVA [Suspect]
     Active Substance: IBANDRONATE SODIUM
     Indication: Osteoporosis
     Dosage: 3MG/3ML
     Route: 042
     Dates: start: 2006, end: 2009

REACTIONS (60)
  - Femur fracture [Unknown]
  - Low turnover osteopathy [Unknown]
  - Intestinal obstruction [Unknown]
  - Fistula [Unknown]
  - Oesophageal rupture [Unknown]
  - Incisional hernia [Unknown]
  - Altered state of consciousness [Unknown]
  - Large intestine polyp [Unknown]
  - Osteoarthritis [Unknown]
  - Fall [Unknown]
  - Oxygen saturation decreased [Unknown]
  - Anaemia postoperative [Unknown]
  - Rib fracture [Unknown]
  - Osteomyelitis [Unknown]
  - Staphylococcal abscess [Unknown]
  - Gastrointestinal haemorrhage [Unknown]
  - Urinary tract candidiasis [Unknown]
  - Deep vein thrombosis [Unknown]
  - Oesophageal dilatation [Unknown]
  - Enterocutaneous fistula [Unknown]
  - Cholelithiasis [Unknown]
  - Oesophageal achalasia [Unknown]
  - Respiratory failure [Unknown]
  - Hypoxia [Unknown]
  - Shock [Unknown]
  - Oesophageal perforation [Unknown]
  - Hypotension [Unknown]
  - Oesophageal dilatation [Unknown]
  - Pneumothorax [Unknown]
  - Pneumomediastinum [Unknown]
  - Tachypnoea [Unknown]
  - Tachycardia [Unknown]
  - Syncope [Unknown]
  - Oesophageal rupture [Fatal]
  - Peritonitis [Fatal]
  - Anxiety disorder [Unknown]
  - Cataract [Unknown]
  - Arthropathy [Unknown]
  - Intestinal obstruction [Not Recovered/Not Resolved]
  - Arthropathy [Unknown]
  - Fall [Unknown]
  - Contusion [Unknown]
  - Osteoarthritis [Unknown]
  - Arthritis bacterial [Unknown]
  - Depression [Unknown]
  - Hypothyroidism [Unknown]
  - Hypertension [Unknown]
  - Abdominal hernia [Unknown]
  - Incisional hernia [Unknown]
  - Gastric ulcer [Unknown]
  - Large intestinal ulcer [Unknown]
  - Gastric fistula [Unknown]
  - Impaired healing [Unknown]
  - Back pain [Unknown]
  - Localised infection [Unknown]
  - Ileus [Not Recovered/Not Resolved]
  - Hypokalaemia [Unknown]
  - Chest discomfort [Unknown]
  - Diabetes mellitus inadequate control [Unknown]
  - Cellulitis [Unknown]

NARRATIVE: CASE EVENT DATE: 19980101
